FAERS Safety Report 18874249 (Version 7)
Quarter: 2022Q2

REPORT INFORMATION
  Report Type: Spontaneous
  Country: JP (occurrence: JP)
  Receive Date: 20210210
  Receipt Date: 20220427
  Transmission Date: 20220721
  Serious: Yes (Hospitalization, Other)
  Sender: FDA-Public Use
  Company Number: JP-BRISTOL-MYERS SQUIBB COMPANY-BMS-2018-099019

PATIENT
  Age: 73 Year
  Sex: Female
  Weight: 4 kg

DRUGS (3)
  1. OPDIVO [Suspect]
     Active Substance: NIVOLUMAB
     Indication: Malignant melanoma
     Dosage: 1 MG/KG (55 MG), EVERY 3 WEEKS
     Route: 041
     Dates: start: 20180801
  2. OPDIVO [Suspect]
     Active Substance: NIVOLUMAB
     Dosage: 240 MILLIGRAM
     Route: 041
     Dates: end: 20190212
  3. YERVOY [Suspect]
     Active Substance: IPILIMUMAB
     Indication: Malignant melanoma
     Dosage: 3 MG/KG (166 MG), EVERY 3 WEEKS
     Route: 041
     Dates: start: 20180801, end: 20181009

REACTIONS (5)
  - Immune-mediated enterocolitis [Recovered/Resolved]
  - Oesophagitis [Unknown]
  - Gastritis [Recovered/Resolved]
  - Aptyalism [Recovering/Resolving]
  - Amylase increased [Unknown]

NARRATIVE: CASE EVENT DATE: 20181019
